FAERS Safety Report 7243438-X (Version None)
Quarter: 2011Q1

REPORT INFORMATION
  Report Type: 
  Country: None (occurrence: None)
  Receive Date: 20110125
  Receipt Date: 20110118
  Transmission Date: 20110831
  Serious: Yes (Other)
  Sender: FDA-Public Use
  Company Number: FR-ABBOTT-11P-056-0699153-00

PATIENT
  Sex: Male

DRUGS (4)
  1. KIVEXA [Concomitant]
     Indication: HIV INFECTION
     Dates: start: 20051013
  2. NORVIR [Suspect]
     Indication: HIV INFECTION
     Route: 048
     Dates: start: 20050530, end: 20100914
  3. VIREAD [Concomitant]
     Indication: HIV INFECTION
     Dates: start: 20030409
  4. REYATAZ [Suspect]
     Indication: HIV INFECTION
     Route: 048
     Dates: start: 20050530, end: 20100914

REACTIONS (1)
  - LIPODYSTROPHY ACQUIRED [None]
